FAERS Safety Report 4911946-X (Version None)
Quarter: 2006Q1

REPORT INFORMATION
  Report Type: 
  Country: None (occurrence: None)
  Receive Date: 20060213
  Receipt Date: 20060131
  Transmission Date: 20060701
  Serious: Yes (Other)
  Sender: FDA-Public Use
  Company Number: 2005154484

PATIENT
  Age: 70 Year
  Sex: Female

DRUGS (9)
  1. AMLODIPINE [Suspect]
     Indication: HYPERTENSION
     Dosage: 2.5 MG, ORAL
     Route: 048
     Dates: start: 20050801, end: 20050101
  2. VALSARTAN [Concomitant]
  3. FOSAMAX [Concomitant]
  4. ASAPHEN (ACETYLSALICYLIC ACID) [Concomitant]
  5. CALCIUM (CALCIUM) [Concomitant]
  6. PAXIL (PAROXETINE HYDROCHOROTHIAZIDE) [Concomitant]
  7. COMBIVENT [Concomitant]
  8. ADVAIR DISKUS 100/50 [Concomitant]
  9. HYDROCHLOROTHIAZIDE [Concomitant]

REACTIONS (1)
  - LEUKOCYTOCLASTIC VASCULITIS [None]
